FAERS Safety Report 4928615-2 (Version None)
Quarter: 2006Q1

REPORT INFORMATION
  Report Type: 
  Country: None (occurrence: None)
  Receive Date: 20060301
  Receipt Date: 20060220
  Transmission Date: 20060701
  Serious: Yes (Other)
  Sender: FDA-Public Use
  Company Number: CA-JNJFOC-20060204875

PATIENT
  Sex: Female
  Weight: 62 kg

DRUGS (5)
  1. INFLIXIMAB [Suspect]
     Indication: HEPATITIS C
     Route: 042
     Dates: start: 20051130, end: 20051130
  2. INTERFERON ALFA 2B [Suspect]
     Indication: HEPATITIS C
     Dosage: 10 WEEKLY INJECTIONS.
     Route: 058
     Dates: start: 20051207, end: 20060208
  3. RIBAVIRIN [Suspect]
     Indication: HEPATITIS C
     Route: 048
     Dates: start: 20051207, end: 20060215
  4. TRAZODONE [Concomitant]
     Indication: INSOMNIA
     Route: 048
  5. TRAZODONE [Concomitant]
     Indication: DEPRESSION
     Route: 048

REACTIONS (8)
  - BLOOD URINE PRESENT [None]
  - GASTROINTESTINAL DISORDER [None]
  - JOINT EFFUSION [None]
  - JOINT RANGE OF MOTION DECREASED [None]
  - LIVEDO RETICULARIS [None]
  - POLYARTHRITIS [None]
  - RASH [None]
  - SYNOVITIS [None]
